FAERS Safety Report 25587315 (Version 3)
Quarter: 2025Q4

REPORT INFORMATION
  Report Type: Other
  Country: US (occurrence: US)
  Receive Date: 20250721
  Receipt Date: 20251211
  Transmission Date: 20260118
  Serious: Yes (Hospitalization)
  Sender: TRAVERE THERAPEUTICS
  Company Number: US-TRAVERE-2025TVT01193

PATIENT
  Sex: Female

DRUGS (1)
  1. FILSPARI [Suspect]
     Active Substance: SPARSENTAN
     Indication: IgA nephropathy
     Route: 048
     Dates: start: 202410, end: 202503

REACTIONS (4)
  - Hospitalisation [Unknown]
  - Sinusitis [Recovering/Resolving]
  - Pneumonia [Recovering/Resolving]
  - Orthostatic hypotension [Recovering/Resolving]
